FAERS Safety Report 17820412 (Version 1)
Quarter: 2020Q2

REPORT INFORMATION
  Report Type: Spontaneous
  Country: ES (occurrence: ES)
  Receive Date: 20200525
  Receipt Date: 20200525
  Transmission Date: 20200714
  Serious: Yes (Other)
  Sender: FDA-Public Use
  Company Number: ES-AUROBINDO-AUR-APL-2020-026354

PATIENT
  Age: 12 Year
  Sex: Female
  Weight: 38 kg

DRUGS (6)
  1. METHOTREXATE. [Suspect]
     Active Substance: METHOTREXATE
     Indication: ACUTE MYELOID LEUKAEMIA
     Dosage: INTRATHECAL METHOTREXATE ON THE FIRST DAY OF THE CYCLE
     Route: 037
     Dates: start: 20191023
  2. CYTARABINE. [Suspect]
     Active Substance: CYTARABINE
     Indication: ACUTE MYELOID LEUKAEMIA
     Dosage: 2000 MILLIGRAM/SQ. METER,TOTAL 5 DOSES
     Route: 042
     Dates: start: 20191023
  3. FLUDARABINE [Suspect]
     Active Substance: FLUDARABINE PHOSPHATE
     Indication: ACUTE MYELOID LEUKAEMIA
     Dosage: 30 MILLIGRAM/SQ. METER,TOTAL 5 DOSES
     Route: 042
     Dates: start: 20191023, end: 20191026
  4. LINEZOLID. [Suspect]
     Active Substance: LINEZOLID
     Indication: FEBRILE NEUTROPENIA
     Dosage: 400 MILLIGRAM, TWO TIMES A DAY
     Route: 042
     Dates: start: 20191020
  5. PARACETAMOL [Suspect]
     Active Substance: ACETAMINOPHEN
     Indication: FEBRILE NEUTROPENIA
     Dosage: 430 MILLIGRAM, 3 TIMES A DAY
     Route: 042
     Dates: start: 20191019, end: 20191024
  6. CEFEPIME [Suspect]
     Active Substance: CEFEPIME HYDROCHLORIDE
     Indication: FEBRILE NEUTROPENIA
     Dosage: 2 GRAM, 3 TIMES A DAY
     Route: 042
     Dates: start: 20191019

REACTIONS (2)
  - Hyperbilirubinaemia [Recovered/Resolved]
  - Hepatitis [Recovered/Resolved]

NARRATIVE: CASE EVENT DATE: 20191031
